FAERS Safety Report 5026990-4 (Version None)
Quarter: 2006Q2

REPORT INFORMATION
  Report Type: 
  Country: None (occurrence: None)
  Receive Date: 20060612
  Receipt Date: 20060601
  Transmission Date: 20061013
  Serious: Yes (Hospitalization)
  Sender: FDA-Public Use
  Company Number: 2006BI005235

PATIENT
  Age: 45 Year
  Sex: Male
  Weight: 61.2356 kg

DRUGS (1)
  1. AVONEX [Suspect]
     Indication: MULTIPLE SCLEROSIS
     Dosage: 30 UG; QW IM
     Route: 030
     Dates: start: 20010101

REACTIONS (4)
  - ANOXIC ENCEPHALOPATHY [None]
  - BRAIN DAMAGE [None]
  - CARDIAC ARREST [None]
  - ROAD TRAFFIC ACCIDENT [None]
